FAERS Safety Report 10678564 (Version 1)
Quarter: 2014Q4

REPORT INFORMATION
  Report Type: Spontaneous
  Country: US (occurrence: None)
  Receive Date: 20141224
  Receipt Date: 20141224
  Transmission Date: 20150529
  Serious: Yes (Life-Threatening, Other)
  Sender: FDA-Public Use
  Company Number: None

PATIENT
  Age: 30 Year
  Sex: Female
  Weight: 61.24 kg

DRUGS (2)
  1. MIRENA [Suspect]
     Active Substance: LEVONORGESTREL
  2. DEPO-PROVERA [Suspect]
     Active Substance: MEDROXYPROGESTERONE ACETATE
     Indication: CONTRACEPTION
     Dosage: 1 SHOT EVERY 3 MONTHS INTO THE MUSCLE
     Route: 030

REACTIONS (5)
  - Endometriosis [None]
  - Ovarian cyst [None]
  - Invasive ductal breast carcinoma [None]
  - Breast cancer stage II [None]
  - Cyst rupture [None]

NARRATIVE: CASE EVENT DATE: 20140430
